FAERS Safety Report 6958759-5 (Version None)
Quarter: 2010Q3

REPORT INFORMATION
  Report Type: 
  Country: None (occurrence: None)
  Receive Date: 20100831
  Receipt Date: 20100722
  Transmission Date: 20110219
  Serious: Yes (Other)
  Sender: FDA-Public Use
  Company Number: PHHY2010NL48808

PATIENT
  Sex: Female
  Weight: 60 kg

DRUGS (5)
  1. DIOVAN HCT [Suspect]
     Indication: HYPERTENSION
     Dosage: 1 DF, ONE TIME PER DAY
     Route: 048
     Dates: start: 20080201
  2. SYMBICORT [Suspect]
     Indication: ASTHMA
     Dosage: 2 TIMES PER DAY, 1 DF
     Dates: start: 20000101
  3. ACENOCOUMAROL [Concomitant]
     Dosage: 1 MG(ACCORDING TO SHEDULE OF THE INTESIVE CARE FOR THROMBOTIC PATIENTS)
     Dates: start: 20100301
  4. METOPROLOL TARTRATE [Concomitant]
     Dosage: 50 MG, QD
     Dates: start: 20100301
  5. ALENDRONATE SODIUM [Concomitant]
     Dosage: 70 MG, QD
     Dates: start: 20060301

REACTIONS (5)
  - ARRHYTHMIA [None]
  - ASTHMA [None]
  - COUGH [None]
  - DYSPNOEA [None]
  - OEDEMA MOUTH [None]
